FAERS Safety Report 7654663-8 (Version None)
Quarter: 2011Q3

REPORT INFORMATION
  Report Type: 
  Country: None (occurrence: None)
  Receive Date: 20110804
  Receipt Date: 20110727
  Transmission Date: 20111222
  Serious: Yes (Hospitalization, Other)
  Sender: FDA-Public Use
  Company Number: US-BIOGENIDEC-2011BI018343

PATIENT
  Age: 53 Year
  Sex: Female
  Weight: 92 kg

DRUGS (22)
  1. VITAMIN TAB [Concomitant]
  2. SLIDING SCALE INSULIN [Concomitant]
  3. NEURONTIN [Concomitant]
  4. TYSABRI [Suspect]
     Indication: MULTIPLE SCLEROSIS
     Route: 042
     Dates: start: 20070308, end: 20110414
  5. ZANAFLEX [Concomitant]
  6. BACLOFEN [Concomitant]
  7. LEVOTHYROXINE SODIUM [Concomitant]
  8. ASPIRIN [Concomitant]
  9. CEFTIN [Concomitant]
  10. LIPITOR [Concomitant]
  11. TOBRAMYCIN [Concomitant]
  12. OXYBUTYNIN [Concomitant]
  13. BACLOFEN [Concomitant]
  14. ZANAFLEX [Concomitant]
  15. ZOLOFT [Concomitant]
  16. ZOVIRAX [Concomitant]
  17. XANAX [Concomitant]
     Dates: start: 20110701
  18. LOVENOX [Concomitant]
     Indication: THROMBOSIS PROPHYLAXIS
     Dates: start: 20110701
  19. PANTOPRAZOLE [Concomitant]
  20. NITROFURANTOIN [Concomitant]
  21. METFORMIN HCL [Concomitant]
  22. TOVIAZ [Concomitant]

REACTIONS (3)
  - IMMUNE RECONSTITUTION SYNDROME [None]
  - PROGRESSIVE MULTIFOCAL LEUKOENCEPHALOPATHY [None]
  - MULTIPLE SCLEROSIS RELAPSE [None]
